FAERS Safety Report 9977126 (Version 1)
Quarter: 2014Q1

REPORT INFORMATION
  Report Type: Report from Study
  Country: US (occurrence: US)
  Receive Date: 20140306
  Receipt Date: 20140306
  Transmission Date: 20141002
  Serious: No
  Sender: FDA-Public Use
  Company Number: US-ABBVIE-13P-163-1168641-00

PATIENT
  Age: 55 Year
  Sex: Female
  Weight: 54.48 kg

DRUGS (3)
  1. HUMIRA [Suspect]
     Indication: RHEUMATOID ARTHRITIS
     Dates: start: 201307, end: 201309
  2. METHOTREXATE [Concomitant]
     Indication: RHEUMATOID ARTHRITIS
     Dates: start: 201206
  3. FOLIC ACID [Concomitant]
     Indication: VITAMIN SUPPLEMENTATION

REACTIONS (3)
  - Arthralgia [Not Recovered/Not Resolved]
  - Pain in extremity [Not Recovered/Not Resolved]
  - Back pain [Not Recovered/Not Resolved]
